FAERS Safety Report 6120653-X (Version None)
Quarter: 2009Q1

REPORT INFORMATION
  Report Type: 
  Country: None (occurrence: None)
  Receive Date: 20090312
  Receipt Date: 20090312
  Transmission Date: 20090719
  Serious: Yes (Other)
  Sender: FDA-Public Use
  Company Number: None

PATIENT
  Age: 27 Year
  Sex: Female
  Weight: 58.9676 kg

DRUGS (2)
  1. SINGULAIR [Suspect]
     Indication: ASTHMA
     Dosage: ONE TABLET DAILY PO
     Route: 048
     Dates: start: 20090201, end: 20090307
  2. SINGULAIR [Suspect]
     Indication: SEASONAL ALLERGY
     Dosage: ONE TABLET DAILY PO
     Route: 048
     Dates: start: 20090201, end: 20090307

REACTIONS (5)
  - DEPRESSION [None]
  - EMOTIONAL DISORDER [None]
  - FATIGUE [None]
  - MOOD SWINGS [None]
  - SOMNOLENCE [None]
